FAERS Safety Report 4878292-4 (Version None)
Quarter: 2006Q1

REPORT INFORMATION
  Report Type: 
  Country: None (occurrence: None)
  Receive Date: 20060111
  Receipt Date: 20060103
  Transmission Date: 20060701
  Serious: Yes (Other)
  Sender: FDA-Public Use
  Company Number: US-MERCK-0601USA00441

PATIENT
  Age: 59 Year
  Sex: Female
  Weight: 68 kg

DRUGS (14)
  1. VIOXX [Suspect]
     Indication: ARTHRITIS
     Route: 048
     Dates: start: 19990101, end: 20040101
  2. BUSPAR [Concomitant]
     Route: 065
  3. LIPITOR [Concomitant]
     Route: 065
  4. ZOLOFT [Concomitant]
     Route: 065
  5. TENORMIN [Concomitant]
     Route: 065
  6. DALMANE [Concomitant]
     Route: 065
  7. CALCIUM (UNSPECIFIED) AND VITAMIN D (UNSPECIFIED) [Concomitant]
     Route: 065
  8. ASPIRIN [Concomitant]
     Route: 065
  9. VITAMINS (UNSPECIFIED) [Concomitant]
     Route: 065
  10. NITROSTAT [Concomitant]
     Route: 065
  11. NEURONTIN [Concomitant]
     Route: 065
  12. LORATADINE [Concomitant]
     Route: 065
  13. NEXIUM [Concomitant]
     Route: 065
  14. SYNTHROID [Concomitant]
     Route: 065

REACTIONS (1)
  - MYOCARDIAL INFARCTION [None]
